FAERS Safety Report 7260031-3 (Version None)
Quarter: 2011Q1

REPORT INFORMATION
  Report Type: 
  Country: None (occurrence: None)
  Receive Date: 20110130
  Receipt Date: 20101004
  Transmission Date: 20110831
  Serious: No
  Sender: FDA-Public Use
  Company Number: US-ABBOTT-10P-163-0676559-00

PATIENT
  Sex: Female
  Weight: 108.51 kg

DRUGS (14)
  1. K-DUR [Concomitant]
     Indication: MINERAL SUPPLEMENTATION
  2. HUMIRA [Suspect]
     Dates: start: 20100701, end: 20100925
  3. LISINOPRIL [Concomitant]
     Indication: HYPERTENSION
  4. CITRICAL [Concomitant]
     Indication: PRODUCT USED FOR UNKNOWN INDICATION
  5. ULTRAM [Concomitant]
     Indication: PAIN
  6. TOPROL-XL [Concomitant]
     Indication: HYPERTENSION
  7. SPIRONOLACTONE [Concomitant]
     Indication: OEDEMA
  8. VITAMIN D [Concomitant]
     Indication: VITAMIN D DEFICIENCY
  9. FOLIC ACID [Concomitant]
     Indication: PRODUCT USED FOR UNKNOWN INDICATION
  10. HUMIRA [Suspect]
     Indication: CROHN'S DISEASE
     Dates: start: 20091001, end: 20100701
  11. PREDNISONE [Concomitant]
     Indication: CROHN'S DISEASE
  12. FLONASE [Concomitant]
     Indication: HYPERSENSITIVITY
  13. VITAMIN B-12 [Concomitant]
     Indication: VITAMIN B COMPLEX DEFICIENCY
  14. OMEPRAZOLE [Concomitant]
     Indication: DYSPEPSIA

REACTIONS (6)
  - DIARRHOEA [None]
  - ANGINA PECTORIS [None]
  - ARRHYTHMIA [None]
  - DRUG INEFFECTIVE [None]
  - OEDEMA [None]
  - DYSPNOEA [None]
